FAERS Safety Report 6360941-5 (Version None)
Quarter: 2009Q3

REPORT INFORMATION
  Report Type: 
  Country: None (occurrence: None)
  Receive Date: 20090918
  Receipt Date: 20090910
  Transmission Date: 20100115
  Serious: Yes (Hospitalization)
  Sender: FDA-Public Use
  Company Number: PHHY2009MX39071

PATIENT
  Age: 66 Year
  Sex: Female

DRUGS (1)
  1. ACLASTA [Suspect]
     Indication: OSTEOPOROSIS
     Dosage: 1 INJECTION (5 MG/100 ML) PER YEAR
     Route: 042
     Dates: start: 20080501

REACTIONS (2)
  - SPINAL OPERATION [None]
  - SPINAL SUPPORT [None]
